FAERS Safety Report 7267447-X (Version None)
Quarter: 2011Q1

REPORT INFORMATION
  Report Type: 
  Country: None (occurrence: None)
  Receive Date: 20110121
  Receipt Date: 20110107
  Transmission Date: 20110831
  Serious: Yes (Other)
  Sender: FDA-Public Use
  Company Number: 021795

PATIENT
  Sex: Female
  Weight: 62.1428 kg

DRUGS (4)
  1. METHOTREXATE [Concomitant]
  2. PREDNISONE [Concomitant]
  3. CIMZIA [Suspect]
     Indication: CROHN'S DISEASE
     Dosage: (2 SYRINGES SUBCUTANEOUS) (2 SYRINGES SUBCUTANEOUS)
     Route: 058
     Dates: start: 20100301, end: 20100801
  4. CIMZIA [Suspect]
     Indication: CROHN'S DISEASE
     Dosage: (2 SYRINGES SUBCUTANEOUS) (2 SYRINGES SUBCUTANEOUS)
     Route: 058
     Dates: start: 20101101

REACTIONS (9)
  - SOMNOLENCE [None]
  - PRURITUS GENERALISED [None]
  - PAIN [None]
  - INJECTION SITE SWELLING [None]
  - PURULENCE [None]
  - SMEAR CERVIX ABNORMAL [None]
  - DERMAL CYST [None]
  - NASOPHARYNGITIS [None]
  - NEOPLASM MALIGNANT [None]
